APPROVED DRUG PRODUCT: POTASSIUM CHLORIDE 0.224% IN SODIUM CHLORIDE 0.9%
Active Ingredient: POTASSIUM CHLORIDE; SODIUM CHLORIDE
Strength: 224MG/100ML;900MG/100ML
Dosage Form/Route: INJECTABLE;INJECTION
Application: N017648 | Product #003
Applicant: BAXTER HEALTHCARE CORP
Approved: Approved Prior to Jan 1, 1982 | RLD: Yes | RS: No | Type: DISCN